FAERS Safety Report 15969775 (Version 1)
Quarter: 2019Q1

REPORT INFORMATION
  Report Type: Spontaneous
  Country: US (occurrence: US)
  Receive Date: 20190215
  Receipt Date: 20190215
  Transmission Date: 20190418
  Serious: No
  Sender: FDA-Public Use
  Company Number: US-GLAXOSMITHKLINE-US2019020350

PATIENT
  Age: 61 Year
  Sex: Female

DRUGS (1)
  1. VENTOLIN HFA [Suspect]
     Active Substance: ALBUTEROL SULFATE
     Indication: ASTHMA
     Dosage: UNK UNK, U
     Route: 055

REACTIONS (9)
  - Pharyngeal disorder [Unknown]
  - Wrong technique in device usage process [Unknown]
  - Wrong technique in product usage process [Unknown]
  - Malaise [Unknown]
  - Fall [Unknown]
  - Chest discomfort [Unknown]
  - Lung disorder [Unknown]
  - Oxygen saturation decreased [Unknown]
  - Asthma [Unknown]

NARRATIVE: CASE EVENT DATE: 20180905
